APPROVED DRUG PRODUCT: PROPRANOLOL HYDROCHLORIDE
Active Ingredient: PROPRANOLOL HYDROCHLORIDE
Strength: 40MG
Dosage Form/Route: TABLET;ORAL
Application: A070221 | Product #004 | TE Code: AB
Applicant: PH HEALTH LTD
Approved: Aug 1, 1986 | RLD: No | RS: No | Type: RX